FAERS Safety Report 21458489 (Version 1)
Quarter: 2022Q4

REPORT INFORMATION
  Report Type: Spontaneous
  Country: CN (occurrence: CN)
  Receive Date: 20221014
  Receipt Date: 20221014
  Transmission Date: 20230113
  Serious: Yes (Other)
  Sender: FDA-Public Use
  Company Number: CN-PFIZER INC-PV202200081513

PATIENT
  Age: 56 Year
  Sex: Male
  Weight: 65 kg

DRUGS (2)
  1. EPIRUBICIN [Suspect]
     Active Substance: EPIRUBICIN
     Indication: Retroperitoneal neoplasm
     Dosage: 100 MG, 1X/DAY
     Route: 041
     Dates: start: 20220926, end: 20220927
  2. IFOSFAMIDE [Suspect]
     Active Substance: IFOSFAMIDE
     Indication: Retroperitoneal neoplasm
     Dosage: 3 G, 1X/DAY
     Route: 041
     Dates: start: 20220926, end: 20220930

REACTIONS (2)
  - Dizziness [Recovering/Resolving]
  - Asthenia [Recovering/Resolving]

NARRATIVE: CASE EVENT DATE: 20220929
